FAERS Safety Report 21047178 (Version 1)
Quarter: 2022Q3

REPORT INFORMATION
  Report Type: Spontaneous
  Country: RU (occurrence: None)
  Receive Date: 20220706
  Receipt Date: 20220706
  Transmission Date: 20221026
  Serious: Yes (Other)
  Sender: FDA-Public Use
  Company Number: 2022A243677

PATIENT
  Age: 1639 Week
  Sex: Male

DRUGS (3)
  1. DAPAGLIFLOZIN [Suspect]
     Active Substance: DAPAGLIFLOZIN
     Indication: Type 1 diabetes mellitus
     Route: 048
     Dates: start: 20220617
  2. AMINO ACIDS, SOURCE UNSPECIFIED [Concomitant]
     Active Substance: AMINO ACIDS, SOURCE UNSPECIFIED
     Dosage: 12 TABL PER DAY
  3. INSULIN DETEMIR [Concomitant]
     Active Substance: INSULIN DETEMIR
     Dosage: 48 U/DAY

REACTIONS (3)
  - Blood creatinine increased [Unknown]
  - Blood urea increased [Unknown]
  - Off label use [Unknown]

NARRATIVE: CASE EVENT DATE: 20220617
